FAERS Safety Report 11686601 (Version 2)
Quarter: 2015Q4

REPORT INFORMATION
  Report Type: Report from Study
  Country: US (occurrence: US)
  Receive Date: 20151030
  Receipt Date: 20151102
  Transmission Date: 20160304
  Serious: Yes (Hospitalization, Other)
  Sender: FDA-Public Use
  Company Number: US-BAYER-2015-449992

PATIENT
  Age: 59 Year
  Sex: Female

DRUGS (2)
  1. BETASERON [Suspect]
     Active Substance: INTERFERON BETA-1B
     Indication: MULTIPLE SCLEROSIS
     Dosage: 250 ?G, UNK
     Dates: start: 2014
  2. BETASERON [Suspect]
     Active Substance: INTERFERON BETA-1B
     Indication: MULTIPLE SCLEROSIS
     Dosage: 0.25 MG/ML, QOD
     Route: 058

REACTIONS (7)
  - Central venous catheterisation [None]
  - Muscle spasms [Recovered/Resolved]
  - Cataract operation [None]
  - Injection site bruising [None]
  - Drug dose omission [Recovered/Resolved]
  - Gallbladder disorder [None]
  - Colonoscopy [None]

NARRATIVE: CASE EVENT DATE: 20151018
